FAERS Safety Report 8924466 (Version 2)
Quarter: 2013Q2

REPORT INFORMATION
  Report Type: Spontaneous
  Country: BR (occurrence: BR)
  Receive Date: 20121126
  Receipt Date: 20130402
  Transmission Date: 20140414
  Serious: Yes (Hospitalization, Other)
  Sender: FDA-Public Use
  Company Number: PHHY2012BR105446

PATIENT
  Age: 7 Year
  Sex: Female

DRUGS (4)
  1. TACROLIMUS [Suspect]
     Indication: IMMUNOSUPPRESSION
     Dosage: 7 MG, BID
  2. BASILIXIMAB [Concomitant]
     Indication: IMMUNOSUPPRESSION
  3. MYCOPHENOLATE SODIUM [Concomitant]
     Indication: IMMUNOSUPPRESSION
     Dosage: 180 MG, BID
  4. PREDNISONE [Concomitant]
     Indication: IMMUNOSUPPRESSION
     Dosage: 25 MG, DAILY
     Route: 048

REACTIONS (16)
  - Post transplant distal limb syndrome [Recovered/Resolved]
  - Blood creatinine increased [Recovered/Resolved]
  - Cytomegalovirus infection [Recovered/Resolved]
  - Abdominal pain [Recovered/Resolved]
  - Haematemesis [Recovered/Resolved]
  - Vomiting [Recovered/Resolved]
  - Diarrhoea haemorrhagic [Recovered/Resolved]
  - Diarrhoea [Recovered/Resolved]
  - Decreased appetite [Recovered/Resolved]
  - Weight decreased [Recovered/Resolved]
  - Urinary tract infection [Recovered/Resolved]
  - Transplant rejection [Recovered/Resolved]
  - Fatigue [Recovered/Resolved]
  - Colitis [Recovered/Resolved]
  - Ileitis [Recovered/Resolved]
  - Gastritis erosive [Recovered/Resolved]
